FAERS Safety Report 4467666-1 (Version None)
Quarter: 2004Q4

REPORT INFORMATION
  Report Type: 
  Country: None (occurrence: None)
  Receive Date: 20041001
  Receipt Date: 20040914
  Transmission Date: 20050328
  Serious: Yes (Disabling)
  Sender: FDA-Public Use
  Company Number: 29414

PATIENT
  Age: 74 Year
  Sex: Male

DRUGS (6)
  1. PHENYLEPHRINE  2.5% [Suspect]
     Indication: FUNDOSCOPY
     Dosage: 1 GTT ONCE OPHT
     Route: 047
  2. TROPICAMIDE [Concomitant]
  3. WARFARIN SODIUM [Concomitant]
  4. AMLODIPINE [Concomitant]
  5. ASPIRIN [Concomitant]
  6. METOPROLOL [Concomitant]

REACTIONS (7)
  - CONDITION AGGRAVATED [None]
  - OEDEMA [None]
  - OPTIC DISC DISORDER [None]
  - OPTIC DISC HAEMORRHAGE [None]
  - SCOTOMA [None]
  - VISUAL ACUITY REDUCED [None]
  - VISUAL FIELD DEFECT [None]
